FAERS Safety Report 7751053-4 (Version None)
Quarter: 2011Q3

REPORT INFORMATION
  Report Type: 
  Country: None (occurrence: None)
  Receive Date: 20110912
  Receipt Date: 20110829
  Transmission Date: 20111222
  Serious: Yes (Other)
  Sender: FDA-Public Use
  Company Number: 20110626

PATIENT
  Age: 12 Year
  Sex: Male

DRUGS (1)
  1. SODIUM THIOSULFATE [Suspect]
     Indication: PRODUCT USED FOR UNKNOWN INDICATION
     Dosage: 25 G/1.73 M2 PER DOSE X 92 INTRAVENOUS
     Route: 042

REACTIONS (6)
  - OFF LABEL USE [None]
  - ELECTROCARDIOGRAM QT PROLONGED [None]
  - HYPOCALCAEMIA [None]
  - OVERDOSE [None]
  - INDURATION [None]
  - PAIN [None]
